FAERS Safety Report 11531567 (Version 1)
Quarter: 2015Q3

REPORT INFORMATION
  Report Type: Spontaneous
  Country: US (occurrence: US)
  Receive Date: 20150921
  Receipt Date: 20150921
  Transmission Date: 20151125
  Serious: No
  Sender: FDA-Public Use
  Company Number: US-SHIRE-US201511320

PATIENT
  Age: 68 Year
  Sex: Female
  Weight: 58.96 kg

DRUGS (1)
  1. PENTASA [Suspect]
     Active Substance: MESALAMINE
     Indication: CROHN^S DISEASE
     Dosage: 250 MG, UNKNOWN
     Route: 048
     Dates: start: 201112

REACTIONS (3)
  - Stress fracture [Unknown]
  - Medication residue present [Not Recovered/Not Resolved]
  - Product use issue [Not Recovered/Not Resolved]

NARRATIVE: CASE EVENT DATE: 201112
